FAERS Safety Report 6858559-0 (Version None)
Quarter: 2010Q3

REPORT INFORMATION
  Report Type: 
  Country: None (occurrence: None)
  Receive Date: 20100719
  Receipt Date: 20080208
  Transmission Date: 20110219
  Serious: No
  Sender: FDA-Public Use
  Company Number: US-PFIZER INC-2008013713

PATIENT
  Sex: Female
  Weight: 92.5 kg

DRUGS (2)
  1. CHANTIX [Suspect]
     Indication: SMOKING CESSATION THERAPY
     Dates: start: 20070809, end: 20070817
  2. ESTRADIOL [Concomitant]

REACTIONS (7)
  - ABNORMAL DREAMS [None]
  - DEPRESSED MOOD [None]
  - FEELING ABNORMAL [None]
  - HYPERHIDROSIS [None]
  - INSOMNIA [None]
  - MALAISE [None]
  - NAUSEA [None]
